FAERS Safety Report 8518104-0 (Version None)
Quarter: 2012Q3

REPORT INFORMATION
  Report Type: 
  Country: None (occurrence: None)
  Receive Date: 20120718
  Receipt Date: 20110927
  Transmission Date: 20120928
  Serious: No
  Sender: FDA-Public Use
  Company Number: US-BRISTOL-MYERS SQUIBB COMPANY-16102501

PATIENT
  Age: 82 Year
  Sex: Female

DRUGS (2)
  1. WARFARIN SODIUM [Suspect]
     Dosage: FROM PAST WEEK
     Dates: start: 20110101
  2. HYDROXYUREA [Concomitant]

REACTIONS (3)
  - FATIGUE [None]
  - DYSGEUSIA [None]
  - DIZZINESS [None]
